FAERS Safety Report 24066455 (Version 1)
Quarter: 2024Q3

REPORT INFORMATION
  Report Type: Spontaneous
  Country: US (occurrence: US)
  Receive Date: 20240709
  Receipt Date: 20240709
  Transmission Date: 20241016
  Serious: Yes (Other)
  Sender: BRISTOL MYERS SQUIBB
  Company Number: US-BRISTOL-MYERS SQUIBB COMPANY-2024-105104

PATIENT
  Age: 61 Year
  Sex: Female

DRUGS (1)
  1. THALOMID [Suspect]
     Active Substance: THALIDOMIDE
     Indication: Erythema nodosum
     Route: 048
     Dates: start: 202310

REACTIONS (3)
  - Cholelithiasis [Unknown]
  - Weight increased [Unknown]
  - Eye disorder [Unknown]
